FAERS Safety Report 13093985 (Version 1)
Quarter: 2017Q1

REPORT INFORMATION
  Report Type: Other
  Country: BE (occurrence: US)
  Receive Date: 20170106
  Receipt Date: 20170106
  Transmission Date: 20170428
  Serious: Yes (Death)
  Sender: FDA-Public Use
  Company Number: US-GRANULES INDIA LIMITED-1061633

PATIENT
  Age: 61 Year
  Sex: Female

DRUGS (8)
  1. TRAMADOL. [Concomitant]
     Active Substance: TRAMADOL
     Route: 065
  2. RANITIDINE. [Concomitant]
     Active Substance: RANITIDINE
     Route: 065
  3. QUININE SULFATE. [Concomitant]
     Active Substance: QUININE SULFATE
     Route: 065
  4. ATORVASTATIN [Concomitant]
     Active Substance: ATORVASTATIN
     Route: 065
  5. NAPROXEN SODIUM. [Suspect]
     Active Substance: NAPROXEN SODIUM
     Indication: ARTHRITIS
     Route: 065
  6. METFORMIN [Concomitant]
     Active Substance: METFORMIN HYDROCHLORIDE
     Route: 065
  7. LISINOPIL AND HYDROCHLOROTHIAZIDE [Concomitant]
     Route: 065
  8. ALLOPURINOL. [Concomitant]
     Active Substance: ALLOPURINOL
     Route: 065

REACTIONS (15)
  - Cardiac arrest [Unknown]
  - Vomiting [Unknown]
  - Restlessness [Unknown]
  - Sinus tachycardia [Unknown]
  - Livedo reticularis [Unknown]
  - Thirst [Unknown]
  - Respiratory failure [Fatal]
  - Hepatic failure [Fatal]
  - Diarrhoea [Unknown]
  - Chest pain [Unknown]
  - Multiple organ dysfunction syndrome [Fatal]
  - Hypotension [Unknown]
  - Muscle necrosis [Unknown]
  - Dyspnoea [Fatal]
  - Bradycardia [Unknown]
